FAERS Safety Report 7640890-2 (Version None)
Quarter: 2011Q3

REPORT INFORMATION
  Report Type: 
  Country: None (occurrence: None)
  Receive Date: 20110728
  Receipt Date: 20110728
  Transmission Date: 20111222
  Serious: Yes (Other)
  Sender: FDA-Public Use
  Company Number: None

PATIENT
  Sex: Male
  Weight: 61.688 kg

DRUGS (2)
  1. VITAMIN D [Concomitant]
     Route: 048
  2. PROLIA [Suspect]
     Indication: OSTEOPOROSIS
     Dosage: 60 MG
     Route: 058
     Dates: start: 20110404, end: 20110726

REACTIONS (1)
  - HYPOCALCAEMIA [None]
